FAERS Safety Report 15835830 (Version 1)
Quarter: 2018Q4

REPORT INFORMATION
  Report Type: Spontaneous
  Country: US (occurrence: US)
  Receive Date: 20181221
  Receipt Date: 20181221
  Transmission Date: 20190205
  Serious: No
  Sender: FDA-Public Use
  Company Number: None

PATIENT
  Age: 48 Year
  Sex: Female

DRUGS (1)
  1. DIPHENHYDRAMINE INJ 50MG/ML [Suspect]
     Active Substance: DIPHENHYDRAMINE
     Dosage: OTHER
     Route: 030
     Dates: start: 20171120

REACTIONS (3)
  - Liquid product physical issue [None]
  - Product deposit [None]
  - Product container seal issue [None]

NARRATIVE: CASE EVENT DATE: 20181220
